FAERS Safety Report 6623730-X (Version None)
Quarter: 2010Q1

REPORT INFORMATION
  Report Type: 
  Country: None (occurrence: None)
  Receive Date: 20100310
  Receipt Date: 20091221
  Transmission Date: 20100710
  Serious: No
  Sender: FDA-Public Use
  Company Number: US-BIOGENIDEC-2009BI037207

PATIENT
  Sex: Female

DRUGS (10)
  1. AVONEX [Suspect]
     Indication: MULTIPLE SCLEROSIS
     Route: 030
  2. AVONEX [Suspect]
     Route: 030
     Dates: start: 20090101, end: 20090101
  3. AVONEX [Suspect]
     Route: 030
     Dates: start: 20090101, end: 20091101
  4. AVONEX [Suspect]
  5. SYNTHROID [Concomitant]
     Indication: THYROID DISORDER
  6. VITAMINS [Concomitant]
  7. KLONOPIN [Concomitant]
     Indication: ANXIETY
  8. PROZAC [Concomitant]
  9. PERCOCET [Concomitant]
     Indication: BACK PAIN
  10. SEROQUEL [Concomitant]

REACTIONS (17)
  - ALCOHOL PROBLEM [None]
  - ALOPECIA [None]
  - ASTHENIA [None]
  - BONE DENSITY DECREASED [None]
  - COGNITIVE DISORDER [None]
  - CRYING [None]
  - DRUG ABUSE [None]
  - FALL [None]
  - FATIGUE [None]
  - INDIFFERENCE [None]
  - INFLUENZA LIKE ILLNESS [None]
  - MENOPAUSE [None]
  - PERSONALITY DISORDER [None]
  - TEMPERATURE INTOLERANCE [None]
  - THYROID FUNCTION TEST ABNORMAL [None]
  - WEIGHT DECREASED [None]
  - WOUND INFECTION [None]
